FAERS Safety Report 9734988 (Version 5)
Quarter: 2014Q2

REPORT INFORMATION
  Report Type: Report from Study
  Country: CA (occurrence: CA)
  Receive Date: 20131206
  Receipt Date: 20140603
  Transmission Date: 20141212
  Serious: Yes (Hospitalization, Other)
  Sender: FDA-Public Use
  Company Number: CA-ALEXION PHARMACEUTICALS INC.-A201303717

PATIENT
  Sex: 0

DRUGS (6)
  1. SOLIRIS [Suspect]
     Indication: PAROXYSMAL NOCTURNAL HAEMOGLOBINURIA
     Dosage: 600 MG, QW
     Route: 042
     Dates: start: 20101229, end: 20110114
  2. SOLIRIS [Suspect]
     Dosage: 900 MG, Q2W
     Route: 042
     Dates: start: 20110121
  3. SOLIRIS [Suspect]
     Dosage: 900 MG, Q2W
     Route: 042
     Dates: start: 20140523
  4. FOLIC ACID [Concomitant]
     Indication: SUPPLEMENTATION THERAPY
     Dosage: 5 MG, QD
     Route: 048
  5. VITAMIN B12 [Concomitant]
     Indication: SUPPLEMENTATION THERAPY
     Dosage: 1000 ?G, QD
     Route: 048
  6. SERC [Concomitant]
     Indication: VERTIGO
     Dosage: 16 MG, PRN, UP TO 3X/DAY
     Route: 048
     Dates: start: 201207

REACTIONS (10)
  - Pain [Recovered/Resolved]
  - Malaise [Recovered/Resolved]
  - Headache [Recovered/Resolved]
  - Fatigue [Recovered/Resolved]
  - Hypotension [Unknown]
  - Haemoglobin decreased [Recovered/Resolved]
  - Blood lactate dehydrogenase increased [Recovered/Resolved]
  - Haemoglobin decreased [Recovered/Resolved]
  - White blood cell count decreased [Recovered/Resolved]
  - Malaise [Unknown]
